FAERS Safety Report 17301148 (Version 6)
Quarter: 2025Q4

REPORT INFORMATION
  Report Type: Spontaneous
  Country: US (occurrence: US)
  Receive Date: 20200122
  Receipt Date: 20251224
  Transmission Date: 20260117
  Serious: Yes (Hospitalization, Other)
  Sender: TAKEDA
  Company Number: US-SHIRE-US202002086

PATIENT
  Age: 40 Year
  Sex: Male
  Weight: 78.912 kg

DRUGS (3)
  1. NATPARA (PARATHYROID HORMONE) [Suspect]
     Active Substance: PARATHYROID HORMONE
     Indication: Hypocalcaemia
     Dosage: 75 MICROGRAM, QD
     Dates: start: 20180703
  2. NATPARA (PARATHYROID HORMONE) [Suspect]
     Active Substance: PARATHYROID HORMONE
  3. NATPARA (PARATHYROID HORMONE) [Suspect]
     Active Substance: PARATHYROID HORMONE

REACTIONS (7)
  - Nervousness [Unknown]
  - Ear infection [Unknown]
  - Sinusitis [Unknown]
  - COVID-19 [Recovering/Resolving]
  - Blood calcium decreased [Not Recovered/Not Resolved]
  - Paraesthesia [Recovered/Resolved]
  - Recalled product [Unknown]

NARRATIVE: CASE EVENT DATE: 20200109
